FAERS Safety Report 15936852 (Version 2)
Quarter: 2019Q1

REPORT INFORMATION
  Report Type: Report from Study
  Country: DE (occurrence: DE)
  Receive Date: 20190208
  Receipt Date: 20190226
  Transmission Date: 20190417
  Serious: Yes (Hospitalization)
  Sender: FDA-Public Use
  Company Number: DE-ROCHE-2259698

PATIENT
  Sex: Female

DRUGS (2)
  1. TOCILIZUMAB. [Suspect]
     Active Substance: TOCILIZUMAB
     Indication: RHEUMATOID ARTHRITIS
     Dosage: LAST ADMINISTRATION OF TOCILIZUMAB PRIOR TO THE EVENT RECEIVED ON 18/JUL/2018
     Route: 042
     Dates: end: 20180718
  2. TOCILIZUMAB. [Suspect]
     Active Substance: TOCILIZUMAB
     Route: 042
     Dates: start: 20181122

REACTIONS (4)
  - Neurodermatitis [Not Recovered/Not Resolved]
  - Pain in extremity [Recovered/Resolved]
  - Bone marrow oedema syndrome [Recovered/Resolved]
  - Erythema [Recovered/Resolved]
